FAERS Safety Report 7060651-5 (Version None)
Quarter: 2010Q4

REPORT INFORMATION
  Report Type: 
  Country: None (occurrence: None)
  Receive Date: 20101025
  Receipt Date: 20101008
  Transmission Date: 20110411
  Serious: Yes (Other)
  Sender: FDA-Public Use
  Company Number: US-ROCHE-734372

PATIENT
  Sex: Female

DRUGS (3)
  1. SAQUINAVIR [Suspect]
     Indication: PROPHYLAXIS AGAINST HIV INFECTION
     Route: 065
  2. NORVIR [Suspect]
     Indication: PROPHYLAXIS AGAINST HIV INFECTION
     Route: 048
  3. TRUVADA [Suspect]
     Indication: PROPHYLAXIS AGAINST HIV INFECTION
     Route: 065

REACTIONS (1)
  - POLYHYDRAMNIOS [None]
